FAERS Safety Report 18933681 (Version 1)
Quarter: 2021Q1

REPORT INFORMATION
  Report Type: Spontaneous
  Country: US (occurrence: US)
  Receive Date: 20210224
  Receipt Date: 20210224
  Transmission Date: 20210420
  Serious: Yes (Other)
  Sender: FDA-Public Use
  Company Number: US-TEVA-2021-US-1882556

PATIENT
  Sex: Female

DRUGS (1)
  1. PRIMIDONE TEVA [Suspect]
     Active Substance: PRIMIDONE
     Indication: SEIZURE
     Route: 065

REACTIONS (3)
  - Hypersensitivity [Unknown]
  - Drug ineffective [Unknown]
  - Seizure [Unknown]
